FAERS Safety Report 4700311-6 (Version None)
Quarter: 2005Q2

REPORT INFORMATION
  Report Type: 
  Country: None (occurrence: None)
  Receive Date: 20050627
  Receipt Date: 20030227
  Transmission Date: 20051028
  Serious: Yes (Death, Other)
  Sender: FDA-Public Use
  Company Number: GB-MERCK-0303GBR00053

PATIENT
  Age: 74 Year
  Sex: Female
  Weight: 77 kg

DRUGS (5)
  1. VIOXX [Suspect]
     Route: 048
     Dates: start: 20020701, end: 20030101
  2. PREDNISOLONE [Concomitant]
     Indication: CONNECTIVE TISSUE DISORDER
     Route: 065
     Dates: start: 20000101
  3. BENDROFLUMETHIAZIDE [Concomitant]
     Route: 065
     Dates: start: 20000101
  4. ATORVASTATIN CALCIUM [Concomitant]
     Route: 065
     Dates: start: 20010101
  5. MYCOPHENOLATE MOFETIL [Concomitant]
     Route: 065
     Dates: start: 20010101

REACTIONS (3)
  - DEATH [None]
  - INTRAOCULAR PRESSURE INCREASED [None]
  - IRITIS [None]
